FAERS Safety Report 17262587 (Version 2)
Quarter: 2020Q1

REPORT INFORMATION
  Report Type: Spontaneous
  Country: US (occurrence: US)
  Receive Date: 20200113
  Receipt Date: 20200220
  Transmission Date: 20200409
  Serious: Yes (Hospitalization, Other)
  Sender: FDA-Public Use
  Company Number: US-PFIZER INC-2019494242

PATIENT
  Age: 72 Year
  Sex: Female
  Weight: 63.5 kg

DRUGS (1)
  1. VFEND [Suspect]
     Active Substance: VORICONAZOLE
     Indication: COCCIDIOIDOMYCOSIS
     Dosage: 200 MG, 2X/DAY

REACTIONS (10)
  - Cough [Unknown]
  - Upper-airway cough syndrome [Unknown]
  - Pneumonia legionella [Unknown]
  - Malaise [Recovering/Resolving]
  - Pyrexia [Unknown]
  - Nasopharyngitis [Recovering/Resolving]
  - Dyspnoea [Unknown]
  - Obstructive airways disorder [Unknown]
  - Myasthenia gravis [Unknown]
  - Wheezing [Unknown]

NARRATIVE: CASE EVENT DATE: 201910
